FAERS Safety Report 24181398 (Version 1)
Quarter: 2024Q3

REPORT INFORMATION
  Report Type: Report from Study
  Country: US (occurrence: US)
  Receive Date: 20240807
  Receipt Date: 20240807
  Transmission Date: 20241017
  Serious: Yes (Other)
  Sender: BIOGEN
  Company Number: US-BIOGEN-2024BI01276969

PATIENT
  Sex: Female

DRUGS (1)
  1. VUMERITY [Suspect]
     Active Substance: DIROXIMEL FUMARATE
     Indication: Multiple sclerosis
     Route: 050
     Dates: start: 20240305

REACTIONS (5)
  - Quadriplegia [Unknown]
  - Abdominal discomfort [Unknown]
  - Constipation [Unknown]
  - Defaecation urgency [Unknown]
  - Fatigue [Unknown]
